FAERS Safety Report 5976692-2 (Version None)
Quarter: 2008Q4

REPORT INFORMATION
  Report Type: 
  Country: None (occurrence: None)
  Receive Date: 20081125
  Receipt Date: 20081111
  Transmission Date: 20090506
  Serious: Yes (Hospitalization)
  Sender: FDA-Public Use
  Company Number: 2008-186741-NL

PATIENT
  Age: 31 Year
  Sex: Female

DRUGS (3)
  1. NUVARING [Suspect]
     Indication: CONTRACEPTION
     Dosage: 3 WEEKS IN, 1 WEEK OUT
     Dates: start: 20080501, end: 20081001
  2. NUVARING [Suspect]
     Indication: CONTRACEPTION
     Dosage: 3 WEEKS IN, 1 WEEK OUT
     Dates: start: 20081101
  3. MULTI-VITAMINS [Concomitant]

REACTIONS (3)
  - BLOOD DISORDER [None]
  - COAGULATION FACTOR V LEVEL ABNORMAL [None]
  - DEEP VEIN THROMBOSIS [None]
